FAERS Safety Report 9245550 (Version 1)
Quarter: 2013Q2

REPORT INFORMATION
  Report Type: Spontaneous
  Country: US (occurrence: US)
  Receive Date: 20130422
  Receipt Date: 20130422
  Transmission Date: 20140414
  Serious: Yes (Other)
  Sender: FDA-Public Use
  Company Number: US-ASTELLAS-2012US011573

PATIENT
  Age: 60 Year
  Sex: Female

DRUGS (8)
  1. LEXISCAN [Suspect]
     Indication: SCAN MYOCARDIAL PERFUSION
     Dosage: 0.08 MG/ML, TOTAL DOSE
     Route: 042
     Dates: start: 20120104, end: 20120104
  2. LEXISCAN [Suspect]
     Dosage: 0.08 MG/ML, TOTAL DOSE
     Route: 042
     Dates: start: 20120813, end: 20120813
  3. TECHNETIUM (99M TC) SESTAMIBI [Concomitant]
     Indication: SCAN MYOCARDIAL PERFUSION
     Dosage: 10.9 MCI, TOTAL DOSE
     Route: 042
     Dates: start: 20120104, end: 20120104
  4. TECHNETIUM (99M TC) SESTAMIBI [Concomitant]
     Dosage: 35.9 MCI, TOTAL DOSE
     Route: 042
     Dates: start: 20120104, end: 20120104
  5. TECHNETIUM (99M TC) SESTAMIBI [Concomitant]
     Dosage: 11.32 MCI, TOTAL DOSE
     Route: 042
     Dates: start: 20120813, end: 20120813
  6. TECHNETIUM (99M TC) SESTAMIBI [Concomitant]
     Dosage: 34.8 MCI, TOTAL DOSE
     Route: 042
     Dates: start: 20120813, end: 20120813
  7. AMINOPHYLLINE [Concomitant]
     Indication: SCAN MYOCARDIAL PERFUSION
     Dosage: 100 MG, TOTAL DOSE
     Route: 042
     Dates: start: 20120104, end: 20120104
  8. AMINOPHYLLINE [Concomitant]
     Dosage: 100 MG, TOTAL DOSE
     Route: 042
     Dates: start: 20120813, end: 20120813

REACTIONS (5)
  - Convulsion [Unknown]
  - Convulsion [Unknown]
  - Electrocardiogram ST segment depression [Recovered/Resolved]
  - Hypoaesthesia [Unknown]
  - Hypoaesthesia [Unknown]
